FAERS Safety Report 18516142 (Version 5)
Quarter: 2021Q2

REPORT INFORMATION
  Report Type: Report from Study
  Country: US (occurrence: US)
  Receive Date: 20201118
  Receipt Date: 20210603
  Transmission Date: 20210717
  Serious: Yes (Other)
  Sender: FDA-Public Use
  Company Number: NVSC2020US304357

PATIENT
  Sex: Female

DRUGS (3)
  1. PROMACTA [Suspect]
     Active Substance: ELTROMBOPAG OLAMINE
     Dosage: 50 MG, QD
     Route: 065
  2. PROMACTA [Suspect]
     Active Substance: ELTROMBOPAG OLAMINE
     Dosage: 25 MG, TID
     Route: 065
  3. PROMACTA [Suspect]
     Active Substance: ELTROMBOPAG OLAMINE
     Indication: PRODUCT USED FOR UNKNOWN INDICATION
     Dosage: UNK (VIA MOUTH)
     Route: 048

REACTIONS (14)
  - Joint swelling [Unknown]
  - Abdominal pain upper [Unknown]
  - Incorrect dose administered [Unknown]
  - Immunodeficiency [Unknown]
  - Contusion [Unknown]
  - Hernia [Unknown]
  - Atrial fibrillation [Unknown]
  - Eating disorder [Unknown]
  - Intra-abdominal haemorrhage [Unknown]
  - Blister [Unknown]
  - Platelet count increased [Unknown]
  - Product supply issue [Unknown]
  - Platelet count decreased [Unknown]
  - Nausea [Unknown]
